FAERS Safety Report 17148977 (Version 1)
Quarter: 2019Q4

REPORT INFORMATION
  Report Type: Spontaneous
  Country: AT (occurrence: AT)
  Receive Date: 20191213
  Receipt Date: 20191213
  Transmission Date: 20200122
  Serious: Yes (Other)
  Sender: FDA-Public Use
  Company Number: AT-ABBVIE-19K-009-3164003-00

PATIENT
  Sex: Female

DRUGS (3)
  1. OMEGA 3 + 6 [Concomitant]
     Active Substance: .ALPHA.-TOCOPHEROL ACETATE, D-\EVENING PRIMROSE OIL\FISH OIL
     Indication: PRODUCT USED FOR UNKNOWN INDICATION
  2. IMBRUVICA [Suspect]
     Active Substance: IBRUTINIB
     Indication: CHRONIC LYMPHOCYTIC LEUKAEMIA
     Route: 048
  3. ALPHA LIPOIC ACID [Concomitant]
     Active Substance: .ALPHA.-LIPOIC ACID
     Indication: PRODUCT USED FOR UNKNOWN INDICATION
     Dosage: R-ALPHA-LIPOIC ACID

REACTIONS (1)
  - Dementia [Recovered/Resolved]
